FAERS Safety Report 17991808 (Version 2)
Quarter: 2020Q3

REPORT INFORMATION
  Report Type: Report from Study
  Country: None (occurrence: DE)
  Receive Date: 20200708
  Receipt Date: 20200728
  Transmission Date: 20201103
  Serious: Yes (Hospitalization)
  Sender: FDA-Public Use
  Company Number: DE-ABBVIE-20K-062-3469162-00

PATIENT
  Sex: Male

DRUGS (2)
  1. DUODOPA [Suspect]
     Active Substance: CARBIDOPA\LEVODOPA
     Indication: PARKINSON^S DISEASE
     Dosage: MD: 6.9 ML; CRD: 3.7 ML/H; ED: 2 ML, 16 HR THERAPY
     Route: 050
     Dates: start: 20170912
  2. DUODOPA [Suspect]
     Active Substance: CARBIDOPA\LEVODOPA
     Dosage: MD: 6.9 ML; CRD: 3.7 ML/H; ED: 2 ML, 24 H THERAPY
     Route: 050

REACTIONS (2)
  - Mobility decreased [Recovering/Resolving]
  - Sleep apnoea syndrome [Not Recovered/Not Resolved]
